FAERS Safety Report 15457372 (Version 1)
Quarter: 2018Q4

REPORT INFORMATION
  Report Type: Spontaneous
  Country: BR (occurrence: BR)
  Receive Date: 20181002
  Receipt Date: 20181002
  Transmission Date: 20190204
  Serious: Yes (Other)
  Sender: FDA-Public Use
  Company Number: BR-LUNDBECK-DKLU2052154

PATIENT
  Sex: Male
  Weight: 56 kg

DRUGS (4)
  1. ALPRAZOLAM. [Concomitant]
     Active Substance: ALPRAZOLAM
     Indication: AFRICAN TRYPANOSOMIASIS
     Route: 065
     Dates: start: 2015
  2. CLONAZEPAM. [Concomitant]
     Active Substance: CLONAZEPAM
     Indication: AFRICAN TRYPANOSOMIASIS
     Route: 065
     Dates: start: 2015
  3. FRISIUM [Suspect]
     Active Substance: CLOBAZAM
     Indication: ANXIETY
     Route: 048
  4. PSYLLIUM FIBRE [Concomitant]
     Indication: CONSTIPATION
     Route: 065
     Dates: start: 2015

REACTIONS (3)
  - Constipation [Not Recovered/Not Resolved]
  - Malaise [Not Recovered/Not Resolved]
  - Dependence [Unknown]

NARRATIVE: CASE EVENT DATE: 2015
